FAERS Safety Report 18078483 (Version 1)
Quarter: 2020Q3

REPORT INFORMATION
  Report Type: Spontaneous
  Country: US (occurrence: US)
  Receive Date: 20200728
  Receipt Date: 20200728
  Transmission Date: 20201103
  Serious: Yes (Hospitalization)
  Sender: FDA-Public Use
  Company Number: US-ROCHE-2647040

PATIENT
  Age: 78 Year
  Sex: Male

DRUGS (23)
  1. BANOPHEN [Concomitant]
     Active Substance: DIPHENHYDRAMINE HYDROCHLORIDE
  2. MELOXICAM. [Concomitant]
     Active Substance: MELOXICAM
  3. NABUMETONE. [Concomitant]
     Active Substance: NABUMETONE
  4. LACTULOSE. [Concomitant]
     Active Substance: LACTULOSE
  5. TRAMADOL HCL [Concomitant]
     Active Substance: TRAMADOL HYDROCHLORIDE
  6. AZITHROMYCIN ANHYDROUS. [Concomitant]
     Active Substance: AZITHROMYCIN ANHYDROUS
  7. ESBRIET [Suspect]
     Active Substance: PIRFENIDONE
     Indication: IDIOPATHIC PULMONARY FIBROSIS
     Route: 048
     Dates: start: 20161201
  8. DULOXETINE. [Concomitant]
     Active Substance: DULOXETINE
  9. ELIQUIS [Concomitant]
     Active Substance: APIXABAN
  10. OMEPRAZOLE. [Concomitant]
     Active Substance: OMEPRAZOLE
  11. TRAZODONE [Concomitant]
     Active Substance: TRAZODONE HYDROCHLORIDE
  12. ATORVASTATIN [Concomitant]
     Active Substance: ATORVASTATIN
  13. MIDODRINE [Concomitant]
     Active Substance: MIDODRINE
  14. TAMSULOSIN [Concomitant]
     Active Substance: TAMSULOSIN
  15. VITAMIN D [ERGOCALCIFEROL] [Concomitant]
     Active Substance: ERGOCALCIFEROL
  16. AMOXICILLIN. [Concomitant]
     Active Substance: AMOXICILLIN
  17. APAP;CODEINE [Concomitant]
  18. BACLOFEN. [Concomitant]
     Active Substance: BACLOFEN
  19. CEPHALEXIN. [Concomitant]
     Active Substance: CEPHALEXIN
  20. GABAPENTIN. [Concomitant]
     Active Substance: GABAPENTIN
  21. PREGABALIN. [Concomitant]
     Active Substance: PREGABALIN
  22. PREDNISONE. [Concomitant]
     Active Substance: PREDNISONE
  23. ZOLPIDEM [Concomitant]
     Active Substance: ZOLPIDEM TARTRATE

REACTIONS (1)
  - COVID-19 [Unknown]

NARRATIVE: CASE EVENT DATE: 202006
